FAERS Safety Report 4950488-2 (Version None)
Quarter: 2006Q1

REPORT INFORMATION
  Report Type: 
  Country: None (occurrence: None)
  Receive Date: 20060322
  Receipt Date: 20060209
  Transmission Date: 20060701
  Serious: Yes (Death, Hospitalization)
  Sender: FDA-Public Use
  Company Number: JP-JPN-A200600544

PATIENT
  Age: 75 Year
  Sex: Female

DRUGS (4)
  1. VALTREX [Suspect]
     Indication: FACIAL NEURALGIA
     Dosage: 1000MG THREE TIMES PER DAY
     Route: 048
     Dates: start: 20060123, end: 20060129
  2. SAXIZON [Concomitant]
     Route: 042
  3. CYANOCOBALAMIN [Concomitant]
     Route: 048
  4. ADENOSINE TRIPHOSPHATE DISODIUM [Concomitant]
     Route: 065

REACTIONS (2)
  - CEREBRAL INFARCTION [None]
  - DISSEMINATED INTRAVASCULAR COAGULATION [None]
